FAERS Safety Report 7089959-4 (Version None)
Quarter: 2010Q4

REPORT INFORMATION
  Report Type: 
  Country: None (occurrence: None)
  Receive Date: 20101109
  Receipt Date: 20101026
  Transmission Date: 20110411
  Serious: Yes (Hospitalization)
  Sender: FDA-Public Use
  Company Number: US-AMGEN-USASP2010001833

PATIENT

DRUGS (3)
  1. NPLATE [Suspect]
     Indication: IDIOPATHIC THROMBOCYTOPENIC PURPURA
     Dosage: UNK
  2. NPLATE [Suspect]
  3. NPLATE [Suspect]

REACTIONS (2)
  - ADVERSE DRUG REACTION [None]
  - LOSS OF CONSCIOUSNESS [None]
